FAERS Safety Report 6469989 (Version 3)
Quarter: 2014Q2

REPORT INFORMATION
  Report Type: Report from Study
  Country: GB (occurrence: GB)
  Receive Date: 20071116
  Receipt Date: 20140612
  Transmission Date: 20141212
  Serious: Yes (Death)
  Sender: FDA-Public Use
  Company Number: GB-ROCHE-530148

PATIENT
  Age: 67 Year
  Sex: Male

DRUGS (4)
  1. CAPECITABINE [Suspect]
     Indication: COLORECTAL CANCER
     Dosage: DOSAGE REPORTED AS 4000.  THERAPY PERMANENTLY STOPPED
     Route: 065
     Dates: start: 20071010, end: 20071023
  2. CAPECITABINE [Suspect]
     Route: 065
  3. OXALIPLATIN [Suspect]
     Indication: COLORECTAL CANCER
     Dosage: DOSAGE REPORTED AS 260.  THERAPY PERMANENTLY STOPPED
     Route: 065
     Dates: start: 20071010, end: 20071010
  4. OXALIPLATIN [Suspect]
     Dosage: 130 MG/M
     Route: 065

REACTIONS (1)
  - Diarrhoea [Fatal]
